FAERS Safety Report 9767242 (Version 1)
Quarter: 2013Q4

REPORT INFORMATION
  Report Type: Spontaneous
  Country: US (occurrence: US)
  Receive Date: 20131217
  Receipt Date: 20131217
  Transmission Date: 20140711
  Serious: No
  Sender: FDA-Public Use
  Company Number: US-GLAXOSMITHKLINE-A1045253A

PATIENT
  Age: 69 Year
  Sex: Female

DRUGS (2)
  1. VOTRIENT [Suspect]
     Indication: RENAL CELL CARCINOMA
     Dosage: 1TAB FOUR TIMES PER DAY
     Route: 048
     Dates: start: 20131010
  2. INSULIN [Concomitant]

REACTIONS (2)
  - Epistaxis [Unknown]
  - Diarrhoea [Unknown]
